FAERS Safety Report 20881245 (Version 2)
Quarter: 2022Q3

REPORT INFORMATION
  Report Type: Report from Study
  Country: BR (occurrence: BR)
  Receive Date: 20220526
  Receipt Date: 20220802
  Transmission Date: 20221027
  Serious: Yes (Other)
  Sender: FDA-Public Use
  Company Number: BR-BIOGEN-2022BI01126690

PATIENT
  Sex: Male
  Weight: 110 kg

DRUGS (4)
  1. TYSABRI [Suspect]
     Active Substance: NATALIZUMAB
     Indication: Multiple sclerosis
     Route: 050
     Dates: start: 2021
  2. MANTIDAN (AMANTADINE) [Concomitant]
     Indication: Fatigue
     Route: 050
  3. METFORMIN [Concomitant]
     Active Substance: METFORMIN HYDROCHLORIDE
     Indication: Glucose tolerance impaired
     Route: 050
  4. Diovan HCT (Valsartan and Hydrochlorothiazide) [Concomitant]
     Indication: Hypertension
     Route: 050
     Dates: start: 2019, end: 202203

REACTIONS (2)
  - Alcoholism [Not Recovered/Not Resolved]
  - Nicotine dependence [Not Recovered/Not Resolved]
